FAERS Safety Report 4700609-1 (Version None)
Quarter: 2005Q2

REPORT INFORMATION
  Report Type: 
  Country: None (occurrence: None)
  Receive Date: 20050627
  Receipt Date: 20050325
  Transmission Date: 20051028
  Serious: Yes (Death, Hospitalization, Other)
  Sender: FDA-Public Use
  Company Number: 200512428US

PATIENT
  Age: 68 Year
  Sex: Male

DRUGS (4)
  1. LOVENOX [Suspect]
     Indication: THROMBOSIS PROPHYLAXIS
     Route: 058
     Dates: start: 20050227, end: 20050309
  2. GLUCOPHAGE [Concomitant]
     Dosage: DOSE: UNK
  3. LIPITOR [Concomitant]
     Dosage: DOSE: UNK
  4. ASPIRIN [Concomitant]
     Route: 048

REACTIONS (22)
  - ABDOMINAL DISTENSION [None]
  - BLOOD CREATININE INCREASED [None]
  - BLOOD GLUCOSE DECREASED [None]
  - BLOOD PRESSURE INCREASED [None]
  - BLOOD UREA INCREASED [None]
  - CARDIAC ARREST [None]
  - CHOLANGITIS [None]
  - CHOLECYSTITIS [None]
  - CHOLELITHIASIS [None]
  - DEHYDRATION [None]
  - FALL [None]
  - HAEMATOCRIT DECREASED [None]
  - HAEMOGLOBIN DECREASED [None]
  - HEART RATE INCREASED [None]
  - HEPATIC HAEMORRHAGE [None]
  - HYPOTENSION [None]
  - LUNG INFILTRATION [None]
  - PNEUMONIA [None]
  - POST PROCEDURAL HAEMORRHAGE [None]
  - RENAL FAILURE ACUTE [None]
  - RESPIRATORY DISTRESS [None]
  - VIRAL INFECTION [None]
